FAERS Safety Report 25573936 (Version 2)
Quarter: 2025Q4

REPORT INFORMATION
  Report Type: Other
  Country: JP (occurrence: JP)
  Receive Date: 20250717
  Receipt Date: 20251014
  Transmission Date: 20260117
  Serious: Yes (Other)
  Sender: NX DEVELOPMENT CORPORATION
  Company Number: JP-sbiph-S000199410P

PATIENT
  Age: 72 Year
  Sex: Male
  Weight: 59.6 kg

DRUGS (8)
  1. AMINOLEVULINIC ACID HYDROCHLORIDE [Suspect]
     Active Substance: AMINOLEVULINIC ACID HYDROCHLORIDE
     Indication: Bladder transitional cell carcinoma
     Dosage: 1200 MG
     Route: 048
     Dates: start: 20250414, end: 20250414
  2. BUPIVACAINE HYDROCHLORIDE [Suspect]
     Active Substance: BUPIVACAINE HYDROCHLORIDE
     Route: 024
     Dates: start: 20250414, end: 20250414
  3. XYLOCAINE [Suspect]
     Active Substance: LIDOCAINE HYDROCHLORIDE
     Route: 053
     Dates: start: 20250414, end: 20250414
  4. TADALAFIL [Concomitant]
     Active Substance: TADALAFIL
     Route: 048
  5. BICALUTAMIDE [Concomitant]
     Active Substance: BICALUTAMIDE
     Route: 048
  6. LEVOTHYROXINE [Concomitant]
     Active Substance: LEVOTHYROXINE
     Route: 048
  7. ROSUVASTATIN CALCIUM [Concomitant]
     Active Substance: ROSUVASTATIN CALCIUM
     Route: 048
  8. LIMAPROST [Concomitant]
     Active Substance: LIMAPROST
     Route: 048

REACTIONS (6)
  - Hypotension [Recovered/Resolved]
  - Hepatic function abnormal [Unknown]
  - Dyspnoea [Unknown]
  - Shock [Unknown]
  - Chest pain [Unknown]
  - Oxygen saturation decreased [Unknown]

NARRATIVE: CASE EVENT DATE: 20250414
